FAERS Safety Report 7812944-9 (Version None)
Quarter: 2011Q4

REPORT INFORMATION
  Report Type: 
  Country: None (occurrence: None)
  Receive Date: 20111013
  Receipt Date: 20111004
  Transmission Date: 20120403
  Serious: Yes (Other)
  Sender: FDA-Public Use
  Company Number: US-SANOFI-AVENTIS-2011SA063137

PATIENT
  Sex: Female

DRUGS (5)
  1. HUMALOG [Concomitant]
  2. LANTUS [Suspect]
     Dosage: DOSE:100 UNIT(S)
     Route: 058
  3. SOLOSTAR [Suspect]
  4. OXYCONTIN [Concomitant]
  5. AMBIEN [Concomitant]

REACTIONS (8)
  - DEVICE BREAKAGE [None]
  - DIABETES MELLITUS INADEQUATE CONTROL [None]
  - CONTUSION [None]
  - WEIGHT DECREASED [None]
  - CONCUSSION [None]
  - INCORRECT DOSE ADMINISTERED BY DEVICE [None]
  - ROAD TRAFFIC ACCIDENT [None]
  - PRODUCT QUALITY ISSUE [None]
